FAERS Safety Report 25621439 (Version 2)
Quarter: 2025Q3

REPORT INFORMATION
  Report Type: Spontaneous
  Country: IL (occurrence: IL)
  Receive Date: 20250730
  Receipt Date: 20250806
  Transmission Date: 20251021
  Serious: Yes (Other)
  Sender: TEVA
  Company Number: IL-TEVA-VS-3356581

PATIENT
  Age: 37 Year
  Sex: Male

DRUGS (1)
  1. TERIPARATIDE [Suspect]
     Active Substance: TERIPARATIDE
     Indication: Osteoporosis
     Route: 058
     Dates: start: 202507, end: 202507

REACTIONS (10)
  - Impaired quality of life [Unknown]
  - Insomnia [Unknown]
  - General physical health deterioration [Unknown]
  - Mental disorder [Unknown]
  - Burning sensation [Unknown]
  - Paraesthesia [Unknown]
  - Pain [Unknown]
  - Gait inability [Unknown]
  - Loss of personal independence in daily activities [Unknown]
  - Hair colour changes [Unknown]

NARRATIVE: CASE EVENT DATE: 20250101
